FAERS Safety Report 6812247-5 (Version None)
Quarter: 2010Q2

REPORT INFORMATION
  Report Type: 
  Country: None (occurrence: None)
  Receive Date: 20100628
  Receipt Date: 20100615
  Transmission Date: 20101027
  Serious: Yes (Hospitalization, Other)
  Sender: FDA-Public Use
  Company Number: 013628

PATIENT
  Sex: Male

DRUGS (6)
  1. KEPPRA [Suspect]
     Dosage: (750 MG BID)
     Dates: start: 20070222, end: 20070601
  2. KEPPRA [Suspect]
     Dosage: (750 MG BID)
     Dates: start: 20060601
  3. CARBAMAZEPINE [Suspect]
     Dosage: (400 MG BID)
     Dates: end: 19940401
  4. CARBAMAZEPINE [Suspect]
     Dosage: (400 MG BID)
     Dates: start: 20070601, end: 20080801
  5. TOPAMAX [Concomitant]
  6. LACOSAMIDE [Concomitant]

REACTIONS (17)
  - AGITATION [None]
  - DEMYELINATING POLYNEUROPATHY [None]
  - GRAND MAL CONVULSION [None]
  - INFECTION [None]
  - INSOMNIA [None]
  - LIVER FUNCTION TEST ABNORMAL [None]
  - MALAISE [None]
  - PARAESTHESIA [None]
  - PERIORBITAL HAEMATOMA [None]
  - PERIPHERAL SENSORIMOTOR NEUROPATHY [None]
  - PERSONALITY CHANGE [None]
  - QUADRIPARESIS [None]
  - ROAD TRAFFIC ACCIDENT [None]
  - SENSORY NEUROPATHY HEREDITARY [None]
  - TRAUMATIC BRAIN INJURY [None]
  - TREATMENT NONCOMPLIANCE [None]
  - TREMOR [None]
